FAERS Safety Report 14708593 (Version 1)
Quarter: 2018Q2

REPORT INFORMATION
  Report Type: Spontaneous
  Country: FR (occurrence: FR)
  Receive Date: 20180403
  Receipt Date: 20180403
  Transmission Date: 20180711
  Serious: Yes (Hospitalization)
  Sender: FDA-Public Use
  Company Number: FR-TEVA-2018-FR-875847

PATIENT
  Age: 71 Year
  Sex: Female

DRUGS (2)
  1. HYDROXYZINE [Suspect]
     Active Substance: HYDROXYZINE HYDROCHLORIDE
     Route: 065
  2. PRAVASTATINE TEVA 10 MG [Suspect]
     Active Substance: PRAVASTATIN
     Route: 065

REACTIONS (1)
  - Product packaging confusion [Unknown]

NARRATIVE: CASE EVENT DATE: 201803
